FAERS Safety Report 13768079 (Version 6)
Quarter: 2017Q4

REPORT INFORMATION
  Report Type: Spontaneous
  Country: US (occurrence: US)
  Receive Date: 20170719
  Receipt Date: 20171120
  Transmission Date: 20180320
  Serious: Yes (Other)
  Sender: FDA-Public Use
  Company Number: US-PFIZER INC-2016600829

PATIENT
  Age: 72 Year
  Sex: Female

DRUGS (3)
  1. FEMARA [Concomitant]
     Active Substance: LETROZOLE
     Dosage: UNK, DAILY (25, EVERY DAY)
  2. IBRANCE [Suspect]
     Active Substance: PALBOCICLIB
     Indication: BREAST CANCER METASTATIC
     Dosage: 100 MG, CYCLIC (ONCE DAILY WITH FOOD, 21 DAYS ON, 7 DAYS OFF)
     Route: 048
     Dates: start: 201702
  3. LETROZOLE. [Suspect]
     Active Substance: LETROZOLE
     Dosage: UNK

REACTIONS (13)
  - Impaired gastric emptying [Unknown]
  - Abdominal discomfort [Recovered/Resolved]
  - Vomiting [Unknown]
  - Hypoacusis [Unknown]
  - Nausea [Unknown]
  - Back pain [Unknown]
  - Multiple sclerosis [Unknown]
  - Arthritis [Unknown]
  - Cataract [Unknown]
  - Constipation [Unknown]
  - Fibromyalgia [Unknown]
  - Gastric disorder [Recovered/Resolved]
  - Sleep disorder [Unknown]

NARRATIVE: CASE EVENT DATE: 201704
